FAERS Safety Report 4653635-5 (Version None)
Quarter: 2005Q2

REPORT INFORMATION
  Report Type: 
  Country: None (occurrence: None)
  Receive Date: 20050505
  Receipt Date: 20050428
  Transmission Date: 20051028
  Serious: Yes (Death)
  Sender: FDA-Public Use
  Company Number: IE-ROCHE-403615

PATIENT
  Age: 80 Year
  Sex: Male

DRUGS (2)
  1. XELODA [Suspect]
     Indication: COLON CANCER
     Route: 065
  2. OXALIPLATIN [Concomitant]
     Indication: COLON CANCER
     Dosage: GIVEN ON DAYS ONE AND EIGHT (REGIMEN NOT PROVIDED).

REACTIONS (6)
  - ACIDOSIS [None]
  - DIARRHOEA [None]
  - HYPERTENSION [None]
  - RENAL FAILURE [None]
  - SEPSIS [None]
  - SHOCK [None]
